FAERS Safety Report 22958544 (Version 8)
Quarter: 2024Q3

REPORT INFORMATION
  Report Type: Spontaneous
  Country: JP (occurrence: JP)
  Receive Date: 20230919
  Receipt Date: 20240829
  Transmission Date: 20241016
  Serious: Yes (Death, Hospitalization, Other)
  Sender: LUNDBECK
  Company Number: JP-SAKK-2023SA280114AA

PATIENT

DRUGS (10)
  1. SABRIL [Suspect]
     Active Substance: VIGABATRIN
     Indication: Infantile spasms
     Dosage: 200 MG, BID
     Route: 048
     Dates: start: 20211118, end: 20211120
  2. SABRIL [Suspect]
     Active Substance: VIGABATRIN
     Dosage: 400 MG, BID
     Route: 048
     Dates: start: 20211121, end: 20211123
  3. SABRIL [Suspect]
     Active Substance: VIGABATRIN
     Dosage: 600 MG, BID
     Route: 048
     Dates: start: 20211124, end: 20230501
  4. VALPROATE SODIUM [Concomitant]
     Active Substance: VALPROATE SODIUM
     Dosage: DAILY DOSE: 320 MG
     Route: 048
     Dates: start: 20211117, end: 20220330
  5. VALPROATE SODIUM [Concomitant]
     Active Substance: VALPROATE SODIUM
     Dosage: DAILY DOSE: 500 MG
     Route: 048
     Dates: start: 20220527, end: 20230501
  6. VALPROATE SODIUM [Concomitant]
     Active Substance: VALPROATE SODIUM
     Indication: Infantile spasms
  7. INOVELON [Concomitant]
     Active Substance: RUFINAMIDE
     Indication: Infantile spasms
     Dosage: DAILY DOSE: 400 MG
     Route: 048
     Dates: start: 20221116, end: 20230501
  8. LEVOCARNITINE HYDROCHLORIDE [Concomitant]
     Active Substance: LEVOCARNITINE HYDROCHLORIDE
     Indication: Infantile spasms
     Dosage: DAILY DOSE: 3 ML
     Route: 048
     Dates: start: 20220614, end: 20230501
  9. CERCINE [Concomitant]
     Active Substance: DIAZEPAM
     Indication: Muscle tightness
     Dosage: DAILY DOSE: 4 MG
     Route: 048
     Dates: start: 20211117, end: 20230501
  10. PRANLUKAST [Concomitant]
     Active Substance: PRANLUKAST
     Indication: Product used for unknown indication
     Dosage: DAILY DOSE: 60 MG
     Route: 048
     Dates: start: 20211124, end: 20230501

REACTIONS (4)
  - Disseminated intravascular coagulation [Fatal]
  - Septic shock [Fatal]
  - Pyrexia [Fatal]
  - Tachycardia [Fatal]

NARRATIVE: CASE EVENT DATE: 20230429
